FAERS Safety Report 14111708 (Version 1)
Quarter: 2017Q4

REPORT INFORMATION
  Report Type: Spontaneous
  Country: US (occurrence: None)
  Receive Date: 20171020
  Receipt Date: 20171020
  Transmission Date: 20180321
  Serious: Yes (Other)
  Sender: FDA-Public Use
  Company Number: None

PATIENT
  Age: 38 Year
  Sex: Male
  Weight: 96.16 kg

DRUGS (1)
  1. SUBOXONE [Suspect]
     Active Substance: BUPRENORPHINE HYDROCHLORIDE\NALOXONE HYDROCHLORIDE
     Indication: DRUG DEPENDENCE
     Dosage: 8-2 MG    #2 DAY
     Route: 060
     Dates: start: 201603, end: 201710

REACTIONS (3)
  - Product formulation issue [None]
  - Product dosage form issue [None]
  - Nausea [None]

NARRATIVE: CASE EVENT DATE: 201603
